FAERS Safety Report 6029822-0 (Version None)
Quarter: 2009Q1

REPORT INFORMATION
  Report Type: 
  Country: None (occurrence: None)
  Receive Date: 20090106
  Receipt Date: 20090106
  Transmission Date: 20090719
  Serious: Yes (Other)
  Sender: FDA-Public Use
  Company Number: None

PATIENT
  Sex: Male
  Weight: 124.7392 kg

DRUGS (2)
  1. LAMOTRIGINE [Suspect]
     Indication: BIPOLAR DISORDER
     Dosage: 50 MG 1 WK 1 DAY ORAL
     Route: 048
     Dates: end: 20081126
  2. LAMICTAL [Suspect]
     Dosage: 100 MG/WK 1 DAY 200 MG REST 1 DAY

REACTIONS (3)
  - BLISTER [None]
  - HAEMORRHAGE [None]
  - SKIN ULCER [None]
